FAERS Safety Report 6359629-6 (Version None)
Quarter: 2009Q3

REPORT INFORMATION
  Report Type: 
  Country: None (occurrence: None)
  Receive Date: 20090917
  Receipt Date: 20080526
  Transmission Date: 20100115
  Serious: Yes (Other)
  Sender: FDA-Public Use
  Company Number: US-ROCHE-654740

PATIENT

DRUGS (3)
  1. PYRIMETHAMINE/SULFADOXINE [Suspect]
     Dosage: FOR TWO DOSES AT LEAST FOUR WEEKS APART. 500 MG SULFADOXINE AND 25 MG PYRIMETHAMINE
     Route: 064
  2. FERROUS SULFATE TAB [Concomitant]
  3. FOLIC ACID [Concomitant]

REACTIONS (1)
  - SMALL FOR DATES BABY [None]
